FAERS Safety Report 4965876-8 (Version None)
Quarter: 2006Q2

REPORT INFORMATION
  Report Type: 
  Country: None (occurrence: None)
  Receive Date: 20060405
  Receipt Date: 20060405
  Transmission Date: 20061013
  Serious: Yes (Disabling)
  Sender: FDA-Public Use
  Company Number: None

PATIENT
  Sex: Male
  Weight: 69.05 kg

DRUGS (1)
  1. BACTRIM [Suspect]
     Indication: BRONCHITIS
     Dosage: 1 TABLET BID PO
     Route: 048
     Dates: start: 20060223, end: 20060303

REACTIONS (1)
  - AZOTAEMIA [None]
